FAERS Safety Report 17942414 (Version 3)
Quarter: 2020Q3

REPORT INFORMATION
  Report Type: Spontaneous
  Country: US (occurrence: US)
  Receive Date: 20200624
  Receipt Date: 20200716
  Transmission Date: 20201103
  Serious: Yes (Death, Hospitalization, Other)
  Sender: FDA-Public Use
  Company Number: US-LUNDBECK-DKLU3017676

PATIENT
  Age: 77 Year
  Sex: Female

DRUGS (2)
  1. NORTHERA [Suspect]
     Active Substance: DROXIDOPA
     Indication: DIZZINESS
     Route: 048
     Dates: start: 20200103
  2. NORTHERA [Suspect]
     Active Substance: DROXIDOPA
     Indication: TREMOR
     Route: 065
     Dates: start: 20200528

REACTIONS (4)
  - Death [Fatal]
  - Unresponsive to stimuli [Unknown]
  - Pulse abnormal [Unknown]
  - Peripheral coldness [Unknown]

NARRATIVE: CASE EVENT DATE: 20200619
